FAERS Safety Report 4280979-1 (Version None)
Quarter: 2004Q1

REPORT INFORMATION
  Report Type: 
  Country: None (occurrence: None)
  Receive Date: 20040127
  Receipt Date: 20040121
  Transmission Date: 20041129
  Serious: Yes (Life-Threatening, Hospitalization)
  Sender: FDA-Public Use
  Company Number: HQWYE536722JAN04

PATIENT
  Age: 49 Year
  Sex: Female
  Weight: 65.4 kg

DRUGS (13)
  1. RAPAMUNE [Suspect]
     Indication: PROPHYLAXIS AGAINST TRANSPLANT REJECTION
     Dosage: 6 MG 1X PER 1 DAY; ORAL
     Route: 048
     Dates: start: 20031029, end: 20040121
  2. PROPOFOL [Concomitant]
  3. TYLENOL [Concomitant]
  4. PREDNISONE [Concomitant]
  5. NORVASC [Concomitant]
  6. INSULIN [Concomitant]
  7. CYCLOSPORINE [Concomitant]
  8. METOPROLOL [Concomitant]
  9. MORPHINE [Concomitant]
  10. HYDROCORTISONE [Concomitant]
  11. LORAZEPAM [Concomitant]
  12. ZYVOX [Concomitant]
  13. PANTOPRAZOLE [Concomitant]

REACTIONS (10)
  - ACUTE RESPIRATORY DISTRESS SYNDROME [None]
  - BLOOD PH DECREASED [None]
  - GASTROINTESTINAL HAEMORRHAGE [None]
  - HAEMATOCRIT DECREASED [None]
  - HAEMOGLOBIN DECREASED [None]
  - LUNG CONSOLIDATION [None]
  - LUNG INFILTRATION [None]
  - PCO2 DECREASED [None]
  - PO2 DECREASED [None]
  - PO2 INCREASED [None]
